FAERS Safety Report 20064608 (Version 1)
Quarter: 2021Q4

REPORT INFORMATION
  Report Type: Spontaneous
  Country: CN (occurrence: CN)
  Receive Date: 20211112
  Receipt Date: 20211112
  Transmission Date: 20220303
  Serious: Yes (Hospitalization, Other)
  Sender: FDA-Public Use
  Company Number: CN-009507513-2111CHN003695

PATIENT
  Sex: Male

DRUGS (2)
  1. KEYTRUDA [Suspect]
     Active Substance: PEMBROLIZUMAB
     Indication: Neoplasm malignant
     Dosage: 200 MG, EVERY 21 DAYS
     Route: 041
     Dates: start: 20210708, end: 20211101
  2. LENVATINIB MESYLATE [Suspect]
     Active Substance: LENVATINIB MESYLATE
     Indication: Neoplasm malignant
     Dosage: 8 MG, ONCE A DAY
     Route: 048
     Dates: start: 20210708, end: 20211101

REACTIONS (3)
  - Immune-mediated enterocolitis [Unknown]
  - Large intestinal ulcer [Not Recovered/Not Resolved]
  - Malignant neoplasm progression [Unknown]

NARRATIVE: CASE EVENT DATE: 20211101
